FAERS Safety Report 8349609-3 (Version None)
Quarter: 2012Q2

REPORT INFORMATION
  Report Type: 
  Country: None (occurrence: None)
  Receive Date: 20120510
  Receipt Date: 20120502
  Transmission Date: 20120825
  Serious: Yes (Hospitalization)
  Sender: FDA-Public Use
  Company Number: US-BAYER-2011-122495

PATIENT
  Age: 28 Year
  Sex: Female
  Weight: 85.714 kg

DRUGS (10)
  1. TAPAZOLE [Concomitant]
     Indication: HYPERTHYROIDISM
     Route: 048
  2. YASMIN [Suspect]
     Indication: CONTRACEPTION
     Dosage: UNK
     Dates: start: 20070101, end: 20090101
  3. YASMIN [Suspect]
  4. NEXIUM [Concomitant]
     Indication: GASTROOESOPHAGEAL REFLUX DISEASE
     Dosage: 40 MG, UNK
     Route: 048
  5. METRONIDAZOLE [Concomitant]
     Dosage: 500 MG, UNK
     Route: 048
  6. PROMETHAZINE [Concomitant]
     Dosage: 25 MG, UNK
     Route: 048
  7. ACETAMINOPHEN AND HYDROCODONE BITARTRATE [Concomitant]
     Dosage: 7.5-500 MG
     Route: 048
  8. DICYCLOMINE [Concomitant]
     Dosage: 20 MG, UNK
     Route: 048
  9. YASMIN [Suspect]
  10. PROTONIX [Concomitant]
     Dosage: 40 MG, UNK
     Route: 048

REACTIONS (9)
  - CHOLECYSTITIS ACUTE [None]
  - ABDOMINAL PAIN [None]
  - ANHEDONIA [None]
  - ANXIETY [None]
  - PAIN [None]
  - GALLBLADDER DISORDER [None]
  - DYSPEPSIA [None]
  - EMOTIONAL DISTRESS [None]
  - GENERAL PHYSICAL HEALTH DETERIORATION [None]
